FAERS Safety Report 22530886 (Version 1)
Quarter: 2023Q2

REPORT INFORMATION
  Report Type: Report from Study
  Country: GB (occurrence: GB)
  Receive Date: 20230607
  Receipt Date: 20230607
  Transmission Date: 20230721
  Serious: Yes (Congenital Anomaly, Other)
  Sender: FDA-Public Use
  Company Number: GB-SUN PHARMACEUTICAL INDUSTRIES LTD-2023R1-392890

PATIENT
  Sex: Female

DRUGS (2)
  1. ZONISAMIDE [Suspect]
     Active Substance: ZONISAMIDE
     Indication: Seizure
     Dosage: 200 MILLIGRAM, DAILY
     Route: 065
  2. FOLIC ACID [Suspect]
     Active Substance: FOLIC ACID
     Indication: Seizure
     Dosage: 5 MG
     Route: 065

REACTIONS (2)
  - Foetal exposure during pregnancy [Unknown]
  - Inguinal hernia [Unknown]
